FAERS Safety Report 10553920 (Version 3)
Quarter: 2014Q4

REPORT INFORMATION
  Report Type: Spontaneous
  Country: US (occurrence: US)
  Receive Date: 20141030
  Receipt Date: 20141031
  Transmission Date: 20150529
  Serious: Yes (Hospitalization)
  Sender: FDA-Public Use
  Company Number: US-EISAI MEDICAL RESEARCH-E2007-01714-SPO-US

PATIENT
  Age: 36 Year
  Sex: Male

DRUGS (4)
  1. FYCOMPA [Suspect]
     Active Substance: PERAMPANEL
     Route: 048
     Dates: start: 201407, end: 201410
  2. FYCOMPA [Suspect]
     Active Substance: PERAMPANEL
     Indication: PARTIAL SEIZURES
     Route: 048
     Dates: start: 20140516, end: 201407
  3. FYCOMPA [Suspect]
     Active Substance: PERAMPANEL
     Route: 048
     Dates: start: 201410
  4. VITAMIN B6 [Concomitant]
     Active Substance: PYRIDOXINE HYDROCHLORIDE
     Indication: SUICIDAL IDEATION
     Dosage: UNKNOWN
     Dates: start: 201408, end: 201410

REACTIONS (4)
  - Suicidal ideation [Unknown]
  - Irritability [Unknown]
  - Homicidal ideation [Unknown]
  - Aggression [Unknown]

NARRATIVE: CASE EVENT DATE: 2014
